FAERS Safety Report 15497672 (Version 2)
Quarter: 2018Q4

REPORT INFORMATION
  Report Type: Spontaneous
  Country: TR (occurrence: TR)
  Receive Date: 20181015
  Receipt Date: 20181017
  Transmission Date: 20190205
  Serious: Yes (Hospitalization, Other)
  Sender: FDA-Public Use
  Company Number: TR-STRIDES ARCOLAB LIMITED-2018SP008722

PATIENT
  Age: 68 Year
  Sex: Female

DRUGS (3)
  1. MELOXICAM. [Suspect]
     Active Substance: MELOXICAM
     Indication: BACK PAIN
     Dosage: 15 MG, UNKNOWN (TABLETS)
     Route: 048
  2. TENOXICAM [Suspect]
     Active Substance: TENOXICAM
     Indication: BACK PAIN
     Dosage: 20 MG INJECTION
     Route: 030
  3. ETODOLAC. [Suspect]
     Active Substance: ETODOLAC
     Indication: BACK PAIN
     Dosage: 400 MG, UNK (TABLETS)
     Route: 048

REACTIONS (5)
  - Anaphylactic shock [Unknown]
  - Acute respiratory distress syndrome [Unknown]
  - Acute pulmonary oedema [Unknown]
  - Palpitations [Unknown]
  - Dyspnoea [Unknown]
